FAERS Safety Report 7919606-8 (Version None)
Quarter: 2011Q4

REPORT INFORMATION
  Report Type: 
  Country: None (occurrence: None)
  Receive Date: 20111117
  Receipt Date: 20111111
  Transmission Date: 20120403
  Serious: Yes (Hospitalization)
  Sender: FDA-Public Use
  Company Number: US-CELGENEUS-163-21880-11111932

PATIENT
  Sex: Female
  Weight: 68.4 kg

DRUGS (11)
  1. FLONASE [Concomitant]
     Dosage: .05
     Route: 055
  2. CALCIUM +D [Concomitant]
     Route: 065
  3. PLAVIX [Concomitant]
     Dosage: 75 MILLIGRAM
     Route: 065
  4. FENOFEXADINE [Concomitant]
     Dosage: 180 MILLIGRAM
     Route: 065
  5. PROTONIX [Concomitant]
     Dosage: 40 MILLIGRAM
     Route: 065
  6. CARVEDILOL [Concomitant]
     Dosage: 12.5 MILLIGRAM
     Route: 065
  7. IBUPROFEN [Concomitant]
     Route: 065
  8. POTASSIUM CHLORIDE [Concomitant]
     Dosage: 20 MILLIGRAM
     Route: 065
  9. REVLIMID [Suspect]
     Dosage: 20 MILLIGRAM
     Route: 048
     Dates: start: 20060710, end: 20111111
  10. OXYCODONE HCL [Concomitant]
     Route: 065
  11. ASPIRIN [Concomitant]
     Route: 065

REACTIONS (1)
  - BLOOD ELECTROLYTES ABNORMAL [None]
